FAERS Safety Report 8267391-5 (Version None)
Quarter: 2012Q2

REPORT INFORMATION
  Report Type: 
  Country: None (occurrence: None)
  Receive Date: 20120409
  Receipt Date: 20120403
  Transmission Date: 20120825
  Serious: Yes (Death, Hospitalization, Other)
  Sender: FDA-Public Use
  Company Number: PHHY2012DE018246

PATIENT
  Age: 71 Year
  Sex: Male

DRUGS (12)
  1. RASILEZ [Suspect]
     Indication: HYPERTENSION
     Dosage: 1 DF, QD
     Route: 048
     Dates: start: 20100517
  2. IRBESARTAN + HYDROCHLOROTHIAZIDE [Concomitant]
     Dosage: 1 DF, QD
     Route: 048
     Dates: start: 20100501
  3. RASILEZ [Suspect]
     Indication: RENAL FAILURE CHRONIC
  4. NEPRESOL [Concomitant]
     Dosage: 0.5 DF, TID
     Route: 048
     Dates: start: 20100501
  5. SPIRIVA [Concomitant]
     Dosage: 1 DF, QD
     Dates: start: 20100501
  6. LERCANIDIPINE [Concomitant]
     Dosage: 0.5 DF, BID
     Route: 048
     Dates: start: 20100501
  7. TORSEMIDE [Concomitant]
     Dosage: 1 DF, QD
     Route: 048
     Dates: start: 20100501
  8. DEKRISTOL [Concomitant]
     Dosage: 1 DF EVERY 2 WEEKS
     Route: 048
     Dates: start: 20100501
  9. ALLOPURINOL [Concomitant]
     Dosage: 0.5 DF, QD
     Route: 048
     Dates: start: 20100501
  10. BISO ABZ [Concomitant]
     Dosage: 0.5 MG, QD
     Dates: start: 20100501
  11. PANTOPRAZOLE [Concomitant]
     Dosage: 1 DF, QID
     Route: 048
     Dates: start: 20100501
  12. SPIRONOLACTONE [Concomitant]
     Dosage: 0.5 DF, QD
     Route: 048
     Dates: start: 20100501

REACTIONS (18)
  - NEPHROANGIOSCLEROSIS [None]
  - HYPERURICAEMIA [None]
  - ARTHRALGIA [None]
  - CARDIOVASCULAR INSUFFICIENCY [None]
  - RENAL FAILURE CHRONIC [None]
  - PROTEIN URINE PRESENT [None]
  - BLOOD PARATHYROID HORMONE INCREASED [None]
  - ACUTE MYELOID LEUKAEMIA [None]
  - BLOOD LACTATE DEHYDROGENASE INCREASED [None]
  - SEPSIS [None]
  - HEPATIC FAILURE [None]
  - PANCYTOPENIA [None]
  - CREATININE RENAL CLEARANCE DECREASED [None]
  - HYPERPARATHYROIDISM SECONDARY [None]
  - PNEUMONIA MYCOPLASMAL [None]
  - MYELODYSPLASTIC SYNDROME [None]
  - PROTEINURIA [None]
  - RESPIRATORY FAILURE [None]
